FAERS Safety Report 26043087 (Version 1)
Quarter: 2025Q4

REPORT INFORMATION
  Report Type: Spontaneous
  Country: EU (occurrence: EU)
  Receive Date: 20251113
  Receipt Date: 20251113
  Transmission Date: 20260118
  Serious: Yes (Hospitalization, Other)
  Sender: SANDOZ
  Company Number: EU-ROCHE-10000341256

PATIENT
  Age: 53 Year
  Sex: Female
  Weight: 65 kg

DRUGS (8)
  1. ATEZOLIZUMAB [Suspect]
     Active Substance: ATEZOLIZUMAB
     Indication: Triple negative breast cancer
     Dosage: LAST DOSE ADMINISTERED BEFORE SAE 03- JUL-2025, 600 MG, C1D1
     Route: 042
     Dates: start: 20250327
  2. CARBOPLATIN [Suspect]
     Active Substance: CARBOPLATIN
     Indication: Triple negative breast cancer
     Dosage: LAST DOSE ADMINISTERED BEFORE SAE 13- JUN-2025, 536 MG, C1D1
     Route: 042
     Dates: start: 20250327
  3. CYCLOPHOSPHAMIDE [Suspect]
     Active Substance: CYCLOPHOSPHAMIDE
     Indication: Triple negative breast cancer
     Dosage: LAST DOSE ADMINISTERED BEFORE SAE, 03- JUL-2025 C5D1LAST DOSE ADMINISTERED BEFORE SAE 04-SEP-2025, 7
     Route: 042
     Dates: start: 20250703
  4. DOXORUBICIN HYDROCHLORIDE [Suspect]
     Active Substance: DOXORUBICIN HYDROCHLORIDE
     Indication: Triple negative breast cancer
     Dosage: LAST DOSE ADMINISTERED BEFORE SAE,  C5D1
     Route: 042
     Dates: start: 20250703
  5. PACLITAXEL [Suspect]
     Active Substance: PACLITAXEL
     Indication: Triple negative breast cancer
     Dosage: LAST DOSE ADMINISTERED BEFORE SAE 26- JUN-2025, 180 MG, C1D1
     Route: 042
     Dates: start: 20250327
  6. TIRAGOLUMAB [Suspect]
     Active Substance: TIRAGOLUMAB
     Indication: Triple negative breast cancer
     Dosage: LAST DOSE ADMINISTERED BEFORE SAE 03- JUL-2025, 1200 MG C1D1
     Route: 042
     Dates: start: 20250327
  7. AMOXICILLIN\CLAVULANATE POTASSIUM [Concomitant]
     Active Substance: AMOXICILLIN\CLAVULANATE POTASSIUM
     Indication: Sialoadenitis
     Dosage: 500.000MG
     Route: 048
     Dates: start: 20250713
  8. PEGFILGRASTIM [Concomitant]
     Active Substance: PEGFILGRASTIM
     Indication: Product used for unknown indication
     Dosage: 6.000MG
     Route: 058
     Dates: start: 20250704, end: 20250704

REACTIONS (2)
  - Febrile neutropenia [Recovered/Resolved]
  - Immune-mediated myocarditis [Not Recovered/Not Resolved]

NARRATIVE: CASE EVENT DATE: 20250712
